FAERS Safety Report 5990324-9 (Version None)
Quarter: 2008Q4

REPORT INFORMATION
  Report Type: 
  Country: None (occurrence: None)
  Receive Date: 20081211
  Receipt Date: 20081203
  Transmission Date: 20090506
  Serious: Yes (Death)
  Sender: FDA-Public Use
  Company Number: JP-ABBOTT-08P-087-0491520-00

PATIENT
  Sex: Female
  Weight: 44 kg

DRUGS (3)
  1. ATENOLOL [Suspect]
     Indication: POISONING DELIBERATE
     Dosage: SIX TABLETS X 50 MG, TOTAL OF 300 MG
  2. PILSICAINIDE [Suspect]
     Indication: POISONING DELIBERATE
     Dosage: 12 TABLETS X 25 MG, TOTAL OF 300 MG
  3. ACETYLSALICYLIC ACID SRT [Concomitant]
     Indication: DRUG USE FOR UNKNOWN INDICATION
     Dosage: (EIGHT TABLETS X 100 MG, TOTAL OF 800 MG

REACTIONS (2)
  - OVERDOSE [None]
  - POISONING DELIBERATE [None]
